FAERS Safety Report 20936588 (Version 3)
Quarter: 2022Q3

REPORT INFORMATION
  Report Type: Other
  Country: CA (occurrence: None)
  Receive Date: 20220609
  Receipt Date: 20220808
  Transmission Date: 20221026
  Serious: Yes (Hospitalization, Other)
  Sender: FDA-Public Use
  Company Number: CA-ROCHE-3064901

PATIENT
  Age: 59 Year
  Sex: Female

DRUGS (16)
  1. RITUXAN [Suspect]
     Active Substance: RITUXIMAB
     Indication: Rheumatoid arthritis
     Dosage: DRUG DOSE FIRST ADMINISTERED IS 1000 MG MILLIGRAM(S)MORE DOSAGE INFO IS DAY 1, DAY 15
     Route: 042
     Dates: start: 20180409, end: 20180425
  2. RITUXAN [Suspect]
     Active Substance: RITUXIMAB
     Dosage: DRUG DOSE FIRST ADMINISTERED IS 1000 MG MILLIGRAMS SINGLE INFUSIONS, NO SPECIFIED FREQUENCY
     Route: 042
     Dates: start: 20181109
  3. RITUXAN [Suspect]
     Active Substance: RITUXIMAB
     Dosage: ONGOING
     Route: 042
     Dates: start: 20191211
  4. BENADRYL [Concomitant]
     Active Substance: DIPHENHYDRAMINE HYDROCHLORIDE
     Indication: Premedication
     Dosage: DRUG DOSE FIRST ADMINISTERED IS 50 MG MILLIGRAMS
     Route: 048
     Dates: start: 20180409
  5. BENADRYL [Concomitant]
     Active Substance: DIPHENHYDRAMINE HYDROCHLORIDE
     Dosage: DRUG DOSE FIRST ADMINISTERED IS UNKNOWN
     Route: 048
     Dates: start: 20191212
  6. CANDESARTAN [Concomitant]
     Active Substance: CANDESARTAN
  7. CELEBREX [Concomitant]
     Active Substance: CELECOXIB
  8. CYMBALTA [Concomitant]
     Active Substance: DULOXETINE HYDROCHLORIDE
  9. DILTIAZEM [Concomitant]
     Active Substance: DILTIAZEM
  10. FUROSEMIDE [Concomitant]
     Active Substance: FUROSEMIDE
  11. METHOTREXATE [Concomitant]
     Active Substance: METHOTREXATE
  12. PREDNISONE [Concomitant]
     Active Substance: PREDNISONE
  13. PULMICORT TURBUHALER [Concomitant]
     Active Substance: BUDESONIDE
  14. CETIRIZINE HYDROCHLORIDE [Concomitant]
     Active Substance: CETIRIZINE HYDROCHLORIDE
     Indication: Drug hypersensitivity
  15. SOLU-MEDROL [Concomitant]
     Active Substance: METHYLPREDNISOLONE SODIUM SUCCINATE
     Indication: Premedication
     Dosage: DRUG DOSE FIRST ADMINISTERED IS 100 MG MILLIGRAMS
     Route: 042
     Dates: start: 20180409
  16. TYLENOL [Concomitant]
     Active Substance: ACETAMINOPHEN
     Indication: Premedication
     Dosage: DRUG DOSE FIRST ADMINISTERED IS 650 MG MILLIGRAM
     Route: 048
     Dates: start: 20180409

REACTIONS (5)
  - COVID-19 pneumonia [Unknown]
  - Coma [Recovered/Resolved]
  - Immune system disorder [Unknown]
  - Pulmonary thrombosis [Unknown]
  - Cardiac arrest [Unknown]

NARRATIVE: CASE EVENT DATE: 20220201
